FAERS Safety Report 6643963-6 (Version None)
Quarter: 2010Q1

REPORT INFORMATION
  Report Type: 
  Country: None (occurrence: None)
  Receive Date: 20100317
  Receipt Date: 20100304
  Transmission Date: 20100710
  Serious: Yes (Hospitalization)
  Sender: FDA-Public Use
  Company Number: 008753

PATIENT
  Age: 59 Year
  Sex: Male

DRUGS (5)
  1. PLETAL [Suspect]
     Indication: CEREBRAL INFARCTION
     Dosage: 200 MG, ORAL
     Route: 048
     Dates: start: 20090801
  2. TACROLIMUS HYDRATE          (TACROLIMUS HYDRATE) UNKNOWN [Suspect]
     Dosage: 4 MG; 3 MG
     Dates: start: 20060401
  3. MYCOPHENOLATE MOFETIL [Concomitant]
  4. PREDNISOLONE [Concomitant]
  5. BASILIXIMAB (GENETICAL RECOMBINATION) (BASILIXIMAB (GENETICAL RECOMBIN [Concomitant]

REACTIONS (6)
  - ACUTE MYOCARDIAL INFARCTION [None]
  - CEREBRAL INFARCTION [None]
  - DRUG INTERACTION [None]
  - KIDNEY FIBROSIS [None]
  - RENAL IMPAIRMENT [None]
  - RENAL TUBULAR ATROPHY [None]
